FAERS Safety Report 14659267 (Version 4)
Quarter: 2019Q1

REPORT INFORMATION
  Report Type: Spontaneous
  Country: GB (occurrence: FR)
  Receive Date: 20180320
  Receipt Date: 20190314
  Transmission Date: 20190417
  Serious: Yes (Hospitalization, Other)
  Sender: FDA-Public Use
  Company Number: FR-FRESENIUS KABI-FK201803019

PATIENT
  Age: 1 Year
  Sex: Female

DRUGS (10)
  1. GLUCOSE/CALCIUM CHLORIDE [Suspect]
     Active Substance: ANHYDROUS DEXTROSE\CALCIUM CHLORIDE
     Indication: PARENTERAL NUTRITION
     Dosage: PER BAG. 500 ML
     Route: 042
  2. SODIUM LACTATE. [Suspect]
     Active Substance: SODIUM LACTATE
     Indication: PARENTERAL NUTRITION
     Dosage: PER BAG
     Route: 042
  3. SMOFLIPID [Suspect]
     Active Substance: FISH OIL\MEDIUM-CHAIN TRIGLYCERIDES\OLIVE OIL\SOYBEAN OIL
     Indication: PARENTERAL NUTRITION
     Dosage: PER BAG. 500 ML
     Route: 042
  4. POTASSIUM CHLORIDE (MANUFACTURER UNKNOWN) [Suspect]
     Active Substance: POTASSIUM CHLORIDE
     Indication: PARENTERAL NUTRITION
     Dosage: PER BAG. 500 ML
     Route: 042
  5. MINERALS NOS [Suspect]
     Active Substance: MINERALS
     Indication: PARENTERAL NUTRITION
     Dosage: PER BAG
     Route: 042
  6. ASCORBIC ACID/PYRIDOXINE HYDROCHLORIDE/BIOTIN/TOCOPHEROL/FOLIC ACID/COLECALCIFEROL/CYANOCOBALAMIN/R E [Suspect]
     Active Substance: VITAMINS
     Indication: PARENTERAL NUTRITION
     Dosage: PER BAG
     Route: 042
  7. POTASSIUM PHOSPHATE DIBASIC [Suspect]
     Active Substance: POTASSIUM PHOSPHATE, DIBASIC
     Indication: PARENTERAL NUTRITION
     Dosage: 500 ML
     Route: 042
  8. SODIUM CHLORIDE (MANUFACTURER UNKNOWN) [Suspect]
     Active Substance: SODIUM CHLORIDE
     Indication: PARENTERAL NUTRITION
     Dosage: PER BAG. 500 ML
     Route: 042
  9. GLUCOSE (MANUFACTURER UNKNOWN) [Suspect]
     Active Substance: DEXTROSE
     Indication: PARENTERAL NUTRITION
     Dosage: PER BAG. 1000 ML
     Route: 042
  10. MAGNESIUM CHLORIDE. [Suspect]
     Active Substance: MAGNESIUM CHLORIDE
     Indication: PARENTERAL NUTRITION
     Dosage: PER BAG. 500 ML
     Route: 042

REACTIONS (3)
  - Catheter site infection [Recovered/Resolved]
  - Bacterial pyelonephritis [Recovered/Resolved]
  - Off label use [Unknown]

NARRATIVE: CASE EVENT DATE: 20180128
